FAERS Safety Report 23711673 (Version 1)
Quarter: 2024Q2

REPORT INFORMATION
  Report Type: Spontaneous
  Country: US (occurrence: US)
  Receive Date: 20240405
  Receipt Date: 20240405
  Transmission Date: 20240715
  Serious: Yes (Other)
  Sender: FDA-Public Use
  Company Number: US-REGENERON PHARMACEUTICALS, INC.-2024-054689

PATIENT
  Sex: Female

DRUGS (1)
  1. EYLEA [Suspect]
     Active Substance: AFLIBERCEPT
     Indication: Macular degeneration
     Dosage: UNK, EVERY 8 WEEKS, FORMULATION: UNKNOWN

REACTIONS (8)
  - Keratoconus [Unknown]
  - Blindness transient [Recovered/Resolved]
  - Corneal transplant [Unknown]
  - Visual impairment [Unknown]
  - Dizziness [Unknown]
  - Vertigo [Unknown]
  - Fall [Unknown]
  - Malaise [Unknown]
